FAERS Safety Report 16788802 (Version 1)
Quarter: 2019Q3

REPORT INFORMATION
  Report Type: Report from Study
  Country: None (occurrence: BR)
  Receive Date: 20190910
  Receipt Date: 20190910
  Transmission Date: 20191005
  Serious: Yes (Other)
  Sender: FDA-Public Use
  Company Number: BR-ABBVIE-19K-020-2913759-00

PATIENT
  Age: 59 Year
  Sex: Male

DRUGS (3)
  1. DIACEREIN [Suspect]
     Active Substance: DIACEREIN
     Indication: OSTEOARTHRITIS
     Route: 048
     Dates: start: 201905, end: 201907
  2. HUMIRA [Suspect]
     Active Substance: ADALIMUMAB
     Route: 058
  3. HUMIRA [Suspect]
     Active Substance: ADALIMUMAB
     Indication: RHEUMATOID ARTHRITIS
     Route: 058
     Dates: start: 20131028

REACTIONS (16)
  - Ankle fracture [Recovering/Resolving]
  - Gait disturbance [Not Recovered/Not Resolved]
  - Abdominal pain upper [Recovered/Resolved]
  - Chromaturia [Recovered/Resolved]
  - Intervertebral disc protrusion [Recovering/Resolving]
  - Dyspepsia [Recovered/Resolved]
  - Fall [Recovered/Resolved]
  - Device deployment issue [Unknown]
  - Musculoskeletal stiffness [Not Recovered/Not Resolved]
  - Arthralgia [Unknown]
  - Wheelchair user [Unknown]
  - Tooth disorder [Unknown]
  - Osteoarthritis [Not Recovered/Not Resolved]
  - Bedridden [Unknown]
  - Tibia fracture [Recovering/Resolving]
  - Foot fracture [Recovering/Resolving]

NARRATIVE: CASE EVENT DATE: 2018
